FAERS Safety Report 24237145 (Version 1)
Quarter: 2024Q3

REPORT INFORMATION
  Report Type: Spontaneous
  Country: US (occurrence: US)
  Receive Date: 20240822
  Receipt Date: 20240822
  Transmission Date: 20241016
  Serious: No
  Sender: RECKITT BENCKISER
  Company Number: US-PROD-AS2-212756134-RB-135370-2023

PATIENT
  Age: 70 Year
  Sex: Male

DRUGS (1)
  1. MUCINEX D MAXIMUM STRENGTH [Suspect]
     Active Substance: GUAIFENESIN\PSEUDOEPHEDRINE HYDROCHLORIDE
     Indication: Cough
     Dosage: 1 DOSAGE FORM, BID
     Route: 048
     Dates: start: 20231009

REACTIONS (3)
  - Constipation [Not Recovered/Not Resolved]
  - Genital swelling [Not Recovered/Not Resolved]
  - Faeces hard [Not Recovered/Not Resolved]

NARRATIVE: CASE EVENT DATE: 20231010
